FAERS Safety Report 5312844-2 (Version None)
Quarter: 2007Q2

REPORT INFORMATION
  Report Type: 
  Country: None (occurrence: None)
  Receive Date: 20070430
  Receipt Date: 20070420
  Transmission Date: 20071010
  Serious: Yes (Life-Threatening, Hospitalization)
  Sender: FDA-Public Use
  Company Number: ES-ABBOTT-07P-144-0365661-00

PATIENT
  Age: 74 Year
  Sex: Male

DRUGS (3)
  1. KALETRA [Suspect]
     Indication: HIV INFECTION
     Route: 048
     Dates: start: 20060501, end: 20060602
  2. TRUVADA [Suspect]
     Indication: HIV INFECTION
     Route: 048
     Dates: end: 20060602
  3. BACTRIM [Concomitant]
     Indication: PROPHYLAXIS
     Route: 048

REACTIONS (1)
  - RENAL FAILURE ACUTE [None]
